FAERS Safety Report 4349356-9 (Version None)
Quarter: 2004Q2

REPORT INFORMATION
  Report Type: 
  Country: None (occurrence: None)
  Receive Date: 20040426
  Receipt Date: 20040414
  Transmission Date: 20050107
  Serious: Yes (Hospitalization)
  Sender: FDA-Public Use
  Company Number: S04-FRA-01726-01

PATIENT
  Age: 73 Year
  Sex: Male

DRUGS (6)
  1. MEMANTINE HCL [Suspect]
     Indication: DEMENTIA ALZHEIMER'S TYPE
     Dosage: 10 MG QD PO
     Route: 048
     Dates: start: 20030827, end: 20030904
  2. MEMANTINE HCL [Suspect]
     Indication: DEMENTIA ALZHEIMER'S TYPE
     Dates: start: 20030202, end: 20030826
  3. TEGRETOL [Concomitant]
  4. THERALENE (ALIMEMAZINE TARTRATE) [Concomitant]
  5. XATRAL (ALFUZOSIN) [Concomitant]
  6. TRANSIPEG (MACROGOL) [Concomitant]

REACTIONS (1)
  - PARTIAL SEIZURES [None]
